FAERS Safety Report 20758866 (Version 1)
Quarter: 2022Q2

REPORT INFORMATION
  Report Type: Spontaneous
  Country: US (occurrence: US)
  Receive Date: 20220427
  Receipt Date: 20220427
  Transmission Date: 20220721
  Serious: No
  Sender: FDA-Public Use
  Company Number: US-BoehringerIngelheim-2022-BI-166727

PATIENT
  Age: 74 Year
  Sex: Female

DRUGS (27)
  1. SPIRIVA [Suspect]
     Active Substance: TIOTROPIUM BROMIDE MONOHYDRATE
     Indication: Cough
     Dates: start: 20210602
  2. TIZANIDINE [Concomitant]
     Active Substance: TIZANIDINE
     Indication: Product used for unknown indication
     Dosage: PRN (AS NECESSARY)
  3. Cerave [Concomitant]
     Indication: Product used for unknown indication
  4. LOSARTAN [Concomitant]
     Active Substance: LOSARTAN
     Indication: Hypertension
  5. CVS muscle rub [Concomitant]
     Indication: Pain
     Dosage: APPLY TO AFFECTED AREA BID PRN
  6. HYOSCYAMINE [Concomitant]
     Active Substance: HYOSCYAMINE
     Indication: Abdominal pain
     Dosage: PRN (AS NECESSARY) CRAMPING
  7. LEVOTHYROXINE [Concomitant]
     Active Substance: LEVOTHYROXINE
     Indication: Hypothyroidism
     Dosage: BEFORE MORNING MEAL
  8. SUCRALFATE [Concomitant]
     Active Substance: SUCRALFATE
     Indication: Product used for unknown indication
  9. FISH OIL [Concomitant]
     Active Substance: FISH OIL
     Indication: Product used for unknown indication
     Dosage: QHS
  10. ACETAMINOPHEN [Concomitant]
     Active Substance: ACETAMINOPHEN
     Indication: Pain
     Dosage: PRN (AS NECESSARY)
  11. FLONASE [Concomitant]
     Active Substance: FLUTICASONE PROPIONATE
     Indication: Rhinitis allergic
     Dosage: 2 SPRAYS EACH NOSTRIL QD PRN (AS NECESSARY)
  12. LATANOPROST [Concomitant]
     Active Substance: LATANOPROST
     Indication: Product used for unknown indication
     Dosage: 1 GTT OD QHS
  13. FLUOROMETHOLONE [Concomitant]
     Active Substance: FLUOROMETHOLONE
     Indication: Product used for unknown indication
     Dosage: 1 GTT OD (OCULUS DEXTE) QAM (EVERY MORNING)
  14. Voltaren 1% gel [Concomitant]
     Indication: Product used for unknown indication
     Dosage: APPLY  TO KNEE, MAY ALSO APPLY TO ANKLE
  15. VENLAFAXINE [Concomitant]
     Active Substance: VENLAFAXINE HYDROCHLORIDE
     Indication: Product used for unknown indication
  16. KETOTIFEN [Concomitant]
     Active Substance: KETOTIFEN
     Indication: Product used for unknown indication
     Dosage: 1 GTT(DROP) OU (BOTH EYE)
  17. Fluocinolone Acetonide Scalp External [Concomitant]
     Indication: Pruritus
     Dosage: APPLY TOPICALLY BID TO ITCHY AREAS OF SCALP
  18. Albuterol 108 mcg/actuation [Concomitant]
     Indication: Asthma
     Dosage: 2 PUFFS Q4H PRN (NECESSARY)
  19. Lac-hydrin lotion [Concomitant]
     Indication: Product used for unknown indication
  20. ARTIFICIAL TEARS [Concomitant]
     Active Substance: GLYCERIN\HYPROMELLOSES\POLYETHYLENE GLYCOL 400
     Indication: Dry eye
     Dosage: 1 GTT BID PRN (NECESSARY)
  21. Doxepin 5% cream [Concomitant]
     Indication: Product used for unknown indication
     Dosage: APPLY TO SKIN QID (4 TIME); APPLY TO PAINFUL AREA ON LEFT FOOT TID(3 TIME)
  22. BUSPIRONE [Concomitant]
     Active Substance: BUSPIRONE HYDROCHLORIDE
     Indication: Anxiety
  23. CETIRIZINE [Concomitant]
     Active Substance: CETIRIZINE HYDROCHLORIDE
     Indication: Rhinitis allergic
  24. LISINOPRIL [Concomitant]
     Active Substance: LISINOPRIL
     Indication: Hypertension
  25. PFIZER-BIONTECH COVID-19 VACCINE [Concomitant]
     Active Substance: TOZINAMERAN
     Indication: Product used for unknown indication
     Dates: start: 2021, end: 2021
  26. PREVNAR [Concomitant]
     Active Substance: PNEUMOCOCCAL 7-VALENT CONJUGATE VACCINE (DIPHTHERIA CRM197 PROTEIN)
     Indication: Product used for unknown indication
  27. PNEUMOVAX 23 [Concomitant]
     Active Substance: PNEUMOCOCCAL VACCINE, POLYVALENT 23
     Indication: Product used for unknown indication

REACTIONS (3)
  - Klebsiella infection [Unknown]
  - Paraesthesia [Recovered/Resolved]
  - Off label use [Unknown]

NARRATIVE: CASE EVENT DATE: 20210816
